FAERS Safety Report 9386967 (Version 1)
Quarter: 2013Q3

REPORT INFORMATION
  Report Type: Spontaneous
  Country: US (occurrence: None)
  Receive Date: 20130703
  Receipt Date: 20130703
  Transmission Date: 20140515
  Serious: Yes (Disabling)
  Sender: FDA-Public Use
  Company Number: None

PATIENT
  Age: 64 Year
  Sex: Female
  Weight: 61.24 kg

DRUGS (5)
  1. ZETONNA [Suspect]
     Indication: MULTIPLE ALLERGIES
     Dosage: 37 MCG PER ACTUATION 60 METERED ACUTATIONS ONE SPRAY PER DAY IN EACH NOSTRIL USED AS A NASAL SPRAY
     Route: 045
     Dates: start: 20130329, end: 20130529
  2. ASTEOPRO [Concomitant]
  3. TRETINOIN CREAM [Concomitant]
  4. CULTURELLE [Concomitant]
  5. GAVISCON [Concomitant]

REACTIONS (5)
  - Abdominal pain upper [None]
  - Nausea [None]
  - Constipation [None]
  - Sinus disorder [None]
  - Secretion discharge [None]
